FAERS Safety Report 9132458 (Version 3)
Quarter: 2013Q2

REPORT INFORMATION
  Report Type: Spontaneous
  Country: US (occurrence: US)
  Receive Date: 20130301
  Receipt Date: 20130501
  Transmission Date: 20140414
  Serious: Yes (Hospitalization)
  Sender: FDA-Public Use
  Company Number: US-GLAXOSMITHKLINE-A1014171A

PATIENT
  Sex: Male

DRUGS (3)
  1. FLOLAN [Suspect]
     Indication: COR PULMONALE CHRONIC
     Dosage: 37.8NGKM CONTINUOUS
     Route: 042
     Dates: start: 20060411
  2. LETAIRIS [Concomitant]
  3. ADCIRCA [Concomitant]

REACTIONS (2)
  - Cardiac failure [Unknown]
  - Abdominal distension [Unknown]
